FAERS Safety Report 13556571 (Version 1)
Quarter: 2017Q2

REPORT INFORMATION
  Report Type: Spontaneous
  Country: US (occurrence: US)
  Receive Date: 20170517
  Receipt Date: 20170517
  Transmission Date: 20170830
  Serious: Yes (Other)
  Sender: FDA-Public Use
  Company Number: None

PATIENT
  Age: 29 Year
  Sex: Female

DRUGS (1)
  1. BUPRENORPHINE NALOXONE 8/2MG TABS [Suspect]
     Active Substance: BUPRENORPHINE\NALOXONE
     Indication: DRUG USE DISORDER
     Dosage: 1 SL TID ORAL
     Route: 048
     Dates: start: 20170404, end: 20170511

REACTIONS (4)
  - Constipation [None]
  - Drug intolerance [None]
  - Maternal exposure timing unspecified [None]
  - Hyperactive pharyngeal reflex [None]

NARRATIVE: CASE EVENT DATE: 20170404
